FAERS Safety Report 16152118 (Version 1)
Quarter: 2019Q2

REPORT INFORMATION
  Report Type: Spontaneous
  Country: FR (occurrence: FR)
  Receive Date: 20190403
  Receipt Date: 20190403
  Transmission Date: 20190711
  Serious: Yes (Hospitalization)
  Sender: FDA-Public Use
  Company Number: FR-SUN PHARMACEUTICAL INDUSTRIES LTD-2019RR-203735

PATIENT
  Age: 52 Year
  Sex: Male
  Weight: 53 kg

DRUGS (8)
  1. LOXAPAC, SOLUTION BUVABLE [Concomitant]
     Active Substance: LOXAPINE
     Indication: PSYCHOTIC DISORDER
     Dosage: 60 GTT, DAILY
     Route: 048
     Dates: end: 20181210
  2. LOVENOX [Suspect]
     Active Substance: ENOXAPARIN SODIUM
     Indication: THROMBOSIS PROPHYLAXIS
     Dosage: 1 DOSAGE FORM, DAILY
     Route: 058
     Dates: start: 20181206, end: 20181227
  3. DIAZEPAM. [Concomitant]
     Active Substance: DIAZEPAM
     Indication: ANXIETY
     Dosage: 12 MILLIGRAM, DAILY
     Route: 048
  4. QUETIAPINE. [Concomitant]
     Active Substance: QUETIAPINE
     Indication: DEPRESSION
     Dosage: 400 MILLIGRAM, DAILY
     Route: 048
     Dates: end: 20181210
  5. NEBIVOLOL. [Concomitant]
     Active Substance: NEBIVOLOL
     Indication: PRODUCT USED FOR UNKNOWN INDICATION
     Dosage: 5 MILLIGRAM, DAILY
     Route: 048
     Dates: end: 20181206
  6. DEPAMIDE 300 MG, COMPRIME PELLICULE GASTRO-RESISTANT [Concomitant]
     Active Substance: VALPROMIDE
     Indication: BIPOLAR DISORDER
     Dosage: 1 DOSAGE FORM, DAILY
     Route: 048
  7. PARACETAMOL [Suspect]
     Active Substance: ACETAMINOPHEN
     Indication: PAIN
     Dosage: 4 GRAM, UNK
     Route: 048
     Dates: start: 20181206, end: 20181222
  8. ESCITALOPRAM [Concomitant]
     Active Substance: ESCITALOPRAM OXALATE
     Indication: DEPRESSION
     Dosage: 10 MILLIGRAM, DAILY
     Route: 048
     Dates: end: 20181210

REACTIONS (1)
  - Thrombocytosis [Recovered/Resolved]

NARRATIVE: CASE EVENT DATE: 20181207
